FAERS Safety Report 24424793 (Version 2)
Quarter: 2025Q3

REPORT INFORMATION
  Report Type: Report from Study
  Country: EU (occurrence: EU)
  Receive Date: 20241010
  Receipt Date: 20250803
  Transmission Date: 20251020
  Serious: Yes (Death, Other)
  Sender: ALEXION PHARMACEUTICALS
  Company Number: EU-AstraZeneca-2023A173738

PATIENT
  Sex: Male
  Weight: 94 kg

DRUGS (2)
  1. DURVALUMAB [Suspect]
     Active Substance: DURVALUMAB
     Indication: Hepatocellular carcinoma
     Dates: start: 20230529, end: 20230529
  2. TREMELIMUMAB [Suspect]
     Active Substance: TREMELIMUMAB
     Indication: Hepatocellular carcinoma
     Dates: start: 20230529, end: 20230529

REACTIONS (4)
  - Hepatic cirrhosis [Fatal]
  - Infection [Fatal]
  - Immunotoxicity [Fatal]
  - Hepatotoxicity [Fatal]
